FAERS Safety Report 6069873-3 (Version None)
Quarter: 2009Q1

REPORT INFORMATION
  Report Type: 
  Country: None (occurrence: None)
  Receive Date: 20090204
  Receipt Date: 20090204
  Transmission Date: 20090719
  Serious: Yes (Life-Threatening, Hospitalization)
  Sender: FDA-Public Use
  Company Number: None

PATIENT
  Age: 59 Year
  Sex: Male
  Weight: 67.4 kg

DRUGS (1)
  1. SIMVASTATIN [Suspect]
     Indication: HYPERLIPIDAEMIA
     Dosage: 80 MG ONCE DAILY PO
     Route: 048
     Dates: start: 20081227, end: 20090126

REACTIONS (11)
  - ASTHENIA [None]
  - BLOOD CREATINE PHOSPHOKINASE INCREASED [None]
  - BLOOD CREATININE INCREASED [None]
  - BLOOD POTASSIUM INCREASED [None]
  - CHROMATURIA [None]
  - DIARRHOEA [None]
  - DIZZINESS [None]
  - LIVER FUNCTION TEST ABNORMAL [None]
  - NAUSEA [None]
  - URINE OUTPUT DECREASED [None]
  - VOMITING [None]
